FAERS Safety Report 9191025 (Version 1)
Quarter: 2013Q1

REPORT INFORMATION
  Report Type: Spontaneous
  Country: FI (occurrence: FI)
  Receive Date: 20130326
  Receipt Date: 20130326
  Transmission Date: 20140127
  Serious: Yes (Other)
  Sender: FDA-Public Use
  Company Number: FI-ROCHE-1203193

PATIENT
  Age: 62 Year
  Sex: Female

DRUGS (3)
  1. AVASTIN [Suspect]
     Indication: OVARIAN CANCER METASTATIC
     Route: 065
     Dates: start: 20090206
  2. XELODA [Suspect]
     Indication: OVARIAN CANCER METASTATIC
     Route: 065
     Dates: start: 20090206
  3. IRINOTECAN [Suspect]
     Indication: OVARIAN CANCER METASTATIC
     Route: 065
     Dates: start: 20090206

REACTIONS (3)
  - Carcinoembryonic antigen increased [Unknown]
  - Metastases to liver [Unknown]
  - Hepatic steatosis [Unknown]
